FAERS Safety Report 10267104 (Version 1)
Quarter: 2014Q2

REPORT INFORMATION
  Report Type: Spontaneous
  Country: US (occurrence: None)
  Receive Date: 20140626
  Receipt Date: 20140626
  Transmission Date: 20141212
  Serious: Yes (Disabling)
  Sender: FDA-Public Use
  Company Number: None

PATIENT
  Age: 71 Year
  Sex: Female
  Weight: 53.52 kg

DRUGS (2)
  1. IMDUR [Suspect]
     Indication: ANGINA PECTORIS
     Route: 048
     Dates: start: 20140222, end: 20140430
  2. IMDUR [Suspect]
     Indication: PROPHYLAXIS
     Route: 048
     Dates: start: 20140222, end: 20140430

REACTIONS (5)
  - Sjogren^s syndrome [None]
  - Condition aggravated [None]
  - Eye pain [None]
  - Photosensitivity reaction [None]
  - Impaired driving ability [None]
